FAERS Safety Report 7962580-9 (Version None)
Quarter: 2011Q4

REPORT INFORMATION
  Report Type: 
  Country: None (occurrence: None)
  Receive Date: 20111207
  Receipt Date: 20111129
  Transmission Date: 20120403
  Serious: Yes (Other)
  Sender: FDA-Public Use
  Company Number: US-PFIZER INC-2011292301

PATIENT
  Sex: Female
  Weight: 74.376 kg

DRUGS (37)
  1. ZOLOFT [Suspect]
     Indication: ADJUSTMENT DISORDER
     Dosage: 75 MG, 1X/DAY
     Dates: start: 19990601
  2. ZOLOFT [Suspect]
     Dosage: 20 MG, 1X/DAY FOR 4 WEEKS
  3. ZOLOFT [Suspect]
     Dosage: 100 MG, FOR 6 MONTHS
     Dates: start: 20040623
  4. EFFEXOR [Suspect]
     Indication: ANXIETY
     Dosage: 75 MG, 1X/DAY
     Dates: start: 20061017
  5. TOPAMAX [Suspect]
     Indication: MIGRAINE
     Dosage: 25, TWICE A DAY FOR SEVEN DAYS
     Dates: start: 20050202
  6. TOPAMAX [Suspect]
     Dosage: 25 MG, X7DAYS IN THE MORNING
     Dates: start: 20050216
  7. MIRAPEX [Suspect]
     Indication: SLEEP DISORDER
  8. PROPRANOLOL [Suspect]
  9. TOPAMAX [Suspect]
     Dosage: 25 MG, AT NIGHT FOR 17 DAYS
     Dates: start: 20040504
  10. CYMBALTA [Suspect]
     Indication: INSOMNIA
     Dosage: 30 MG, 1X/DAY
  11. MOTRIN [Suspect]
     Indication: MIGRAINE
  12. WELLBUTRIN [Suspect]
     Indication: DEPRESSION
     Dosage: 200MG, ONE DAILY
     Dates: start: 20040518, end: 20040520
  13. WELLBUTRIN [Suspect]
     Dosage: 300 MG, UNK
     Dates: start: 20041117
  14. PAXIL [Suspect]
     Dosage: 20 MG, 1X/DAY
     Dates: start: 19990101
  15. ZOLOFT [Suspect]
     Dosage: 75 MG, UNK
     Dates: start: 20021119
  16. XANAX [Suspect]
     Dosage: 0.5 MG, EVERY 8 HOURS
     Dates: start: 20021119
  17. EFFEXOR [Suspect]
     Indication: DEPRESSION
     Dosage: 37.5 MG, 1X/DAY
     Dates: start: 20061010, end: 20061016
  18. ZOLOFT [Suspect]
     Dosage: 50 MG, 1X/DAY
     Dates: start: 19990615
  19. ZOLOFT [Suspect]
     Dosage: 50 MG, UNK
     Route: 048
     Dates: start: 20020520
  20. LEXAPRO [Suspect]
     Dosage: 10 MG, UNK
     Dates: start: 20040623
  21. LORTAB [Suspect]
     Indication: HEADACHE
     Dosage: 7.5/500 ONE EVERY 6-8 HOURS AS NEEDED
     Dates: start: 20040101, end: 20050202
  22. ZOLOFT [Suspect]
     Indication: AFFECTIVE DISORDER
     Dosage: 50MG, FOR FOUR WEEKS
     Dates: start: 19990308
  23. ZOLOFT [Suspect]
     Dosage: 100 MG, 1X/DAY
     Dates: start: 19990727
  24. ZOLOFT [Suspect]
     Dosage: 50 MG, 2X/DAY
     Dates: start: 19991206
  25. ULTRAM [Suspect]
     Indication: HEADACHE
     Dosage: 50 MG, AS NEEDED, EVERY 8 HOURS
     Dates: start: 20041117
  26. LUNESTA [Suspect]
     Indication: SLEEP DISORDER
     Dosage: UNK
     Dates: start: 20090601
  27. EXCEDRIN (MIGRAINE) [Suspect]
     Indication: MIGRAINE
  28. ZOLOFT [Suspect]
     Indication: DEPRESSION
     Dosage: 25MG, A DAY FOR SEVEN DAYS
     Dates: start: 19990301, end: 19990307
  29. XANAX [Suspect]
     Indication: ANXIETY
     Dosage: 0.25 MG, 2X/DAY
  30. CALAN [Suspect]
     Indication: MIGRAINE
     Dosage: UNK
  31. WELLBUTRIN [Suspect]
     Indication: AFFECTIVE DISORDER
     Dosage: 150 MG, 1X/DAY
     Dates: start: 20041111
  32. PAXIL [Suspect]
     Dosage: 10 MG, 1X/DAY
     Route: 048
     Dates: start: 19990601
  33. ELAVIL [Suspect]
     Indication: MIGRAINE
     Dosage: UNK
  34. TOPAMAX [Suspect]
     Dosage: 50 MG AND 25 MG IN THE MORNING FOR 7 DAYS
     Dates: start: 20050209
  35. LORTAB [Suspect]
     Dosage: 5/500 ONE EVERY 8 HOURS AS NEEDED
     Dates: start: 20050118, end: 20050202
  36. MIDRIN [Suspect]
     Indication: MIGRAINE
     Dosage: TWO CAPSULES AT START OF MIGRAINE
     Dates: start: 20111111
  37. ORTHO-NOVUM [Concomitant]
     Dosage: UNK
     Dates: start: 19990301

REACTIONS (22)
  - CHOLELITHIASIS [None]
  - SEBORRHOEA [None]
  - HYSTERECTOMY [None]
  - SALPINGO-OOPHORECTOMY BILATERAL [None]
  - FEELING ABNORMAL [None]
  - RESPIRATORY TRACT INFECTION [None]
  - ANXIETY [None]
  - DEPRESSION [None]
  - WITHDRAWAL SYNDROME [None]
  - DRUG INEFFECTIVE [None]
  - MEMORY IMPAIRMENT [None]
  - AGITATION [None]
  - INSOMNIA [None]
  - MIGRAINE [None]
  - AFFECTIVE DISORDER [None]
  - SINUSITIS [None]
  - ARTERIOSCLEROSIS [None]
  - LIBIDO DECREASED [None]
  - STRESS [None]
  - BIPOLAR II DISORDER [None]
  - OBESITY [None]
  - FOLLICULITIS [None]
